FAERS Safety Report 10233113 (Version 1)
Quarter: 2014Q2

REPORT INFORMATION
  Report Type: Spontaneous
  Country: US (occurrence: US)
  Receive Date: 20140612
  Receipt Date: 20140612
  Transmission Date: 20141212
  Serious: No
  Sender: FDA-Public Use
  Company Number: US-TEVA-487994USA

PATIENT
  Age: 28 Year
  Sex: Female
  Weight: 53.12 kg

DRUGS (3)
  1. PARAGARD 380A [Suspect]
     Indication: CONTRACEPTION
     Route: 015
     Dates: start: 20140224, end: 20140609
  2. MULTIVITAMIN [Concomitant]
     Indication: PRENATAL CARE
  3. VITAMIN D [Concomitant]
     Indication: PRENATAL CARE

REACTIONS (1)
  - Device expulsion [Recovered/Resolved]
